FAERS Safety Report 19406508 (Version 3)
Quarter: 2021Q3

REPORT INFORMATION
  Report Type: Spontaneous
  Country: US (occurrence: US)
  Receive Date: 20210612
  Receipt Date: 20210714
  Transmission Date: 20211014
  Serious: No
  Sender: FDA-Public Use
  Company Number: US-SA-2021SA184432

PATIENT
  Age: 54 Year
  Sex: Male

DRUGS (2)
  1. NOVOLOG [Concomitant]
     Active Substance: INSULIN ASPART
     Dosage: UNK
     Route: 065
  2. LANTUS SOLOSTAR [Suspect]
     Active Substance: INSULIN GLARGINE
     Indication: TYPE 1 DIABETES MELLITUS
     Dosage: 45?50 UNITS, (20 UNIT AM AND ANYWHERE FROM 26 OR 28 AT NIGHT DEPENDING ON SUGAR )
     Route: 065

REACTIONS (5)
  - Poor quality product administered [Unknown]
  - Product quality issue [Unknown]
  - Frustration tolerance decreased [Unknown]
  - Blood glucose increased [Unknown]
  - Inappropriate schedule of product administration [Unknown]
